FAERS Safety Report 9335870 (Version 1)
Quarter: 2013Q2

REPORT INFORMATION
  Report Type: Spontaneous
  Country: US (occurrence: US)
  Receive Date: 20130606
  Receipt Date: 20130606
  Transmission Date: 20140414
  Serious: No
  Sender: FDA-Public Use
  Company Number: US-AMGEN-USASP2013012812

PATIENT
  Sex: Female

DRUGS (3)
  1. PROLIA [Suspect]
     Indication: PRODUCT USED FOR UNKNOWN INDICATION
     Dosage: UNK
     Dates: start: 2012
  2. VERAPAMIL [Concomitant]
     Indication: ATRIAL FIBRILLATION
  3. CARDIZEM                           /00489701/ [Concomitant]
     Indication: ATRIAL FIBRILLATION

REACTIONS (4)
  - Rib fracture [Unknown]
  - Contusion [Unknown]
  - Malaise [Unknown]
  - Fall [Unknown]
